FAERS Safety Report 24862519 (Version 1)
Quarter: 2025Q1

REPORT INFORMATION
  Report Type: Spontaneous
  Country: US (occurrence: US)
  Receive Date: 20250120
  Receipt Date: 20250120
  Transmission Date: 20250409
  Serious: Yes (Other)
  Sender: DR REDDYS
  Company Number: US-DRL-USA-USA/2025/01/000831

PATIENT
  Age: 19 Year
  Sex: Male

DRUGS (1)
  1. CYCLOPHOSPHAMIDE [Suspect]
     Active Substance: CYCLOPHOSPHAMIDE
     Indication: Acute lymphocytic leukaemia

REACTIONS (3)
  - Diffuse alopecia [Recovered/Resolved]
  - Androgenetic alopecia [Recovered/Resolved]
  - Chronic graft versus host disease [Recovered/Resolved]
